FAERS Safety Report 25386455 (Version 1)
Quarter: 2025Q2

REPORT INFORMATION
  Report Type: Spontaneous
  Country: US (occurrence: None)
  Receive Date: 20250602
  Receipt Date: 20250602
  Transmission Date: 20250716
  Serious: Yes (Life-Threatening, Hospitalization)
  Sender: FDA-CTU
  Company Number: None

PATIENT
  Age: 83 Year
  Sex: Male
  Weight: 109 kg

DRUGS (2)
  1. APIXABAN [Suspect]
     Active Substance: APIXABAN
     Indication: Atrial fibrillation
     Dosage: FREQUENCY : TWICE A DAY;?
     Route: 048
     Dates: end: 20250327
  2. APIXABAN [Suspect]
     Active Substance: APIXABAN
     Indication: Mitral valve repair

REACTIONS (4)
  - Gastrointestinal haemorrhage [None]
  - Haematuria [None]
  - Shock haemorrhagic [None]
  - Haemoglobin decreased [None]

NARRATIVE: CASE EVENT DATE: 20240725
